FAERS Safety Report 22246164 (Version 9)
Quarter: 2025Q3

REPORT INFORMATION
  Report Type: Report from Study
  Country: CA (occurrence: CA)
  Receive Date: 20230424
  Receipt Date: 20250718
  Transmission Date: 20251021
  Serious: Yes (Death, Life-Threatening, Other)
  Sender: SAMSUNG BIOEPIS
  Company Number: CA-SAMSUNG BIOEPIS-SB-2023-10615

PATIENT
  Age: 66 Year
  Sex: Female

DRUGS (6)
  1. HADLIMA [Suspect]
     Active Substance: ADALIMUMAB-BWWD
     Indication: Uveitis
     Dosage: 40 MG/0.4ML;
     Route: 058
     Dates: start: 20221028
  2. HADLIMA [Suspect]
     Active Substance: ADALIMUMAB-BWWD
     Dosage: 40MG/0.4ML;
     Dates: start: 20221028
  3. HADLIMA [Suspect]
     Active Substance: ADALIMUMAB-BWWD
     Dates: start: 20221028
  4. HADLIMA [Suspect]
     Active Substance: ADALIMUMAB-BWWD
     Dates: start: 20250319
  5. HADLIMA [Suspect]
     Active Substance: ADALIMUMAB-BWWD
     Dosage: 40MG/0.4ML;
     Dates: start: 20221028
  6. HADLIMA [Suspect]
     Active Substance: ADALIMUMAB-BWWD
     Dosage: 40MG/0.4ML;
     Dates: start: 20221028

REACTIONS (14)
  - Death [Fatal]
  - Lung neoplasm malignant [Unknown]
  - Bone cancer [Unknown]
  - Metastases to liver [Unknown]
  - Terminal state [Unknown]
  - Illness [Unknown]
  - Pneumonia [Unknown]
  - Immune system disorder [Unknown]
  - Intraocular pressure test abnormal [Unknown]
  - Sensitivity to weather change [Unknown]
  - Chest discomfort [Unknown]
  - Vision blurred [Unknown]
  - Photophobia [Unknown]
  - Off label use [Unknown]

NARRATIVE: CASE EVENT DATE: 20230411
